APPROVED DRUG PRODUCT: ABACAVIR SULFATE
Active Ingredient: ABACAVIR SULFATE
Strength: EQ 300MG BASE
Dosage Form/Route: TABLET;ORAL
Application: A091560 | Product #001 | TE Code: AB
Applicant: HETERO LABS LTD UNIT III
Approved: Sep 13, 2013 | RLD: No | RS: Yes | Type: RX